FAERS Safety Report 12617586 (Version 2)
Quarter: 2016Q3

REPORT INFORMATION
  Report Type: Report from Study
  Country: MX (occurrence: MX)
  Receive Date: 20160803
  Receipt Date: 20160804
  Transmission Date: 20161109
  Serious: No
  Sender: FDA-Public Use
  Company Number: PHHY2016MX092352

PATIENT
  Sex: Male
  Weight: 84 kg

DRUGS (2)
  1. EXFORGE HCT [Suspect]
     Active Substance: AMLODIPINE BESYLATE\HYDROCHLOROTHIAZIDE\VALSARTAN
     Dosage: 0.5 DF (AMLODIPINE 10 MG AND HYDROCHLOROTHIAZIDE 25 MG AND VALSARTAN 320MG), AT NIGHT
     Route: 065
  2. EXFORGE HCT [Suspect]
     Active Substance: AMLODIPINE BESYLATE\HYDROCHLOROTHIAZIDE\VALSARTAN
     Indication: HYPERTENSION
     Dosage: 1 DF (AMLODIPINE 10 MG AND HYDROCHLOROTHIAZIDE 25 MG AND VALSARTAN 320MG), QD
     Route: 065

REACTIONS (3)
  - Mood altered [Recovered/Resolved]
  - Blood pressure decreased [Recovered/Resolved]
  - Wrong technique in product usage process [Not Recovered/Not Resolved]
